FAERS Safety Report 6151824-4 (Version None)
Quarter: 2009Q2

REPORT INFORMATION
  Report Type: 
  Country: None (occurrence: None)
  Receive Date: 20090408
  Receipt Date: 20090209
  Transmission Date: 20091009
  Serious: Yes (Other)
  Sender: FDA-Public Use
  Company Number: 8044455

PATIENT
  Age: 59 Year
  Sex: Male

DRUGS (2)
  1. PREDNISOLONE [Suspect]
     Indication: IDIOPATHIC PULMONARY FIBROSIS
     Dosage: 80 MG /D
  2. ANTIBIOTICS [Suspect]
     Indication: CONDITION AGGRAVATED

REACTIONS (1)
  - HYPOCALCAEMIA [None]
